FAERS Safety Report 20671840 (Version 4)
Quarter: 2022Q2

REPORT INFORMATION
  Report Type: Spontaneous
  Country: NL (occurrence: NL)
  Receive Date: 20220405
  Receipt Date: 20220506
  Transmission Date: 20220721
  Serious: Yes (Life-Threatening, Hospitalization, Other)
  Sender: FDA-Public Use
  Company Number: NL-AUROBINDO-AUR-APL-2022-010777

PATIENT
  Age: 76 Year
  Sex: Female

DRUGS (3)
  1. AMITRIPTYLINE [Suspect]
     Active Substance: AMITRIPTYLINE
     Indication: Sleep disorder
     Dosage: 25 MILLIGRAM, ONCE A DAY
     Route: 065
     Dates: start: 2014, end: 201909
  2. AMITRIPTYLINE [Suspect]
     Active Substance: AMITRIPTYLINE
     Indication: Anxiety
  3. AMITRIPTYLINE [Suspect]
     Active Substance: AMITRIPTYLINE
     Indication: Depression

REACTIONS (14)
  - Coma [Recovered/Resolved]
  - Seizure [Recovered/Resolved]
  - Loss of consciousness [Recovered/Resolved]
  - Defect conduction intraventricular [Recovered/Resolved]
  - Antidepressant drug clearance decreased [Recovered/Resolved]
  - Mydriasis [Recovered/Resolved]
  - Toxicity to various agents [Recovered/Resolved]
  - Drug level increased [Recovered/Resolved]
  - Electrocardiogram QRS complex prolonged [Recovered/Resolved]
  - Overdose [Recovered/Resolved]
  - Self-medication [Recovered/Resolved]
  - Electroencephalogram abnormal [Recovering/Resolving]
  - Vomiting [Recovering/Resolving]
  - Intentional product misuse [Unknown]
